FAERS Safety Report 11848882 (Version 1)
Quarter: 2015Q4

REPORT INFORMATION
  Report Type: Other
  Country: US (occurrence: US)
  Receive Date: 20151218
  Receipt Date: 20151218
  Transmission Date: 20160305
  Serious: Yes (Other)
  Sender: FDA-Public Use
  Company Number: US-LUPIN PHARMACEUTICALS INC.-2015-04100

PATIENT
  Age: 55 Year
  Sex: Female

DRUGS (5)
  1. LEVOFLOXACIN. [Suspect]
     Active Substance: LEVOFLOXACIN
     Indication: SINUSITIS
     Dosage: 500 MG/DAY
     Route: 065
  2. LEVOFLOXACIN. [Suspect]
     Active Substance: LEVOFLOXACIN
     Indication: URINARY TRACT INFECTION
     Dosage: 500 MG/DAY
     Route: 065
  3. LEVOFLOXACIN. [Suspect]
     Active Substance: LEVOFLOXACIN
     Dosage: 750 MG/DAY
     Route: 065
  4. LEVOFLOXACIN. [Suspect]
     Active Substance: LEVOFLOXACIN
     Dosage: 500 MG/DAY
     Route: 065
  5. ALENDRONATE [Concomitant]
     Active Substance: ALENDRONATE SODIUM
     Indication: OSTEOPOROSIS
     Route: 065

REACTIONS (16)
  - Myalgia [Unknown]
  - Tendon disorder [Unknown]
  - Neuropathy peripheral [Unknown]
  - Pain [Unknown]
  - Confusional state [Unknown]
  - Arthralgia [Unknown]
  - Cognitive disorder [Unknown]
  - Fatigue [Unknown]
  - Sleep disorder [Unknown]
  - Anxiety [Unknown]
  - Muscle disorder [Unknown]
  - Affective disorder [Unknown]
  - Muscular weakness [Unknown]
  - Amnesia [Unknown]
  - Somatoform disorder [Unknown]
  - Sensory disturbance [Unknown]
